FAERS Safety Report 19547705 (Version 1)
Quarter: 2021Q3

REPORT INFORMATION
  Report Type: Spontaneous
  Country: US (occurrence: US)
  Receive Date: 20210714
  Receipt Date: 20210714
  Transmission Date: 20211014
  Serious: No
  Sender: FDA-Public Use
  Company Number: None

PATIENT
  Sex: Male
  Weight: 87.75 kg

DRUGS (10)
  1. PRESERVISION [Concomitant]
     Active Substance: MINERALS\VITAMINS
  2. CALCIUM [Concomitant]
     Active Substance: CALCIUM
  3. APPLE CIDER VINEGAR [Concomitant]
     Active Substance: APPLE CIDER VINEGAR
  4. PROBIOTICS [Concomitant]
     Active Substance: PROBIOTICS NOS
  5. BUSPIRONE [Suspect]
     Active Substance: BUSPIRONE HYDROCHLORIDE
     Indication: ANXIETY
     Dosage: ?          QUANTITY:1 TABLET(S);?
     Route: 048
  6. FISH OIL [Concomitant]
     Active Substance: FISH OIL
  7. MULTI B, C, D, E [Concomitant]
  8. 81 ASPRIN [Concomitant]
  9. MULTIVIT/MINERAL [Concomitant]
  10. GINKGO BILOBA [Concomitant]
     Active Substance: GINKGO

REACTIONS (5)
  - Pruritus [None]
  - Photosensitivity reaction [None]
  - Dry mouth [None]
  - Swollen tongue [None]
  - Ageusia [None]
